FAERS Safety Report 15699701 (Version 1)
Quarter: 2018Q4

REPORT INFORMATION
  Report Type: Spontaneous
  Country: US (occurrence: US)
  Receive Date: 20181207
  Receipt Date: 20181207
  Transmission Date: 20190205
  Serious: Yes (Death, Other)
  Sender: FDA-Public Use
  Company Number: US-TEVA-2018-US-984143

PATIENT
  Age: 58 Year
  Sex: Male

DRUGS (2)
  1. ADALIMUMAB [Suspect]
     Active Substance: ADALIMUMAB
     Indication: MYCOSIS FUNGOIDES
     Route: 065
  2. SORIATANE [Suspect]
     Active Substance: ACITRETIN
     Indication: MYCOSIS FUNGOIDES
     Route: 065

REACTIONS (4)
  - Off label use [Unknown]
  - Central nervous system lymphoma [Recovered/Resolved]
  - Cerebral haemorrhage [Fatal]
  - Metastases to meninges [Unknown]
